FAERS Safety Report 4854544-9 (Version None)
Quarter: 2005Q4

REPORT INFORMATION
  Report Type: 
  Country: None (occurrence: None)
  Receive Date: 20051215
  Receipt Date: 20051104
  Transmission Date: 20060501
  Serious: Yes (Death, Hospitalization)
  Sender: FDA-Public Use
  Company Number: JP-ROCHE-423574

PATIENT
  Age: 84 Year
  Sex: Female

DRUGS (10)
  1. PANALDINE [Suspect]
     Indication: THROMBOSIS PROPHYLAXIS
     Dosage: OTHER INDICATIONS: STENT PLACEMENT, ANGINA PECTORIS.
     Route: 048
     Dates: start: 20050920, end: 20051025
  2. ARTIST [Concomitant]
     Indication: ANGINA PECTORIS
     Route: 048
     Dates: start: 20050913, end: 20051025
  3. LASIX [Concomitant]
     Route: 048
     Dates: start: 20050615, end: 20051025
  4. ALDACTONE [Concomitant]
     Route: 048
     Dates: start: 20050615, end: 20051025
  5. BLOPRESS [Concomitant]
     Route: 048
     Dates: start: 20041227, end: 20051025
  6. DAONIL [Concomitant]
     Indication: DIABETES MELLITUS
     Route: 048
     Dates: start: 20041227, end: 20051025
  7. BASEN [Concomitant]
     Indication: DIABETES MELLITUS
     Route: 048
     Dates: start: 20041227, end: 20051025
  8. GASMOTIN [Concomitant]
     Indication: ABDOMINAL DISTENSION
     Route: 048
     Dates: start: 20050901, end: 20051025
  9. ASPIRIN [Concomitant]
     Indication: ANGINA PECTORIS
     Route: 048
     Dates: start: 20041227, end: 20051025
  10. FRANDOL [Concomitant]
     Indication: ANGINA PECTORIS
     Route: 046
     Dates: start: 20050705, end: 20051025

REACTIONS (9)
  - BRADYCARDIA [None]
  - CARDIAC ARREST [None]
  - DRUG ERUPTION [None]
  - GRANULOCYTOSIS [None]
  - LIVER DISORDER [None]
  - MALAISE [None]
  - NAUSEA [None]
  - PLEURAL EFFUSION [None]
  - THROMBOTIC THROMBOCYTOPENIC PURPURA [None]
